FAERS Safety Report 12548833 (Version 4)
Quarter: 2016Q3

REPORT INFORMATION
  Report Type: Spontaneous
  Country: JP (occurrence: JP)
  Receive Date: 20160712
  Receipt Date: 20160829
  Transmission Date: 20161109
  Serious: Yes (Death, Other)
  Sender: FDA-Public Use
  Company Number: JP-APOTEX-2016AP009755

PATIENT
  Age: 40 Year
  Sex: Female

DRUGS (7)
  1. PAXIL CR [Suspect]
     Active Substance: PAROXETINE HYDROCHLORIDE
     Dosage: 50 MG, UNK
     Route: 048
     Dates: end: 20151017
  2. PAXIL CR [Suspect]
     Active Substance: PAROXETINE HYDROCHLORIDE
     Dosage: 50 MG, UNK
     Route: 048
  3. XEPLION [Concomitant]
     Active Substance: PALIPERIDONE PALMITATE
     Dosage: 75 MG, UNK
     Route: 065
  4. PAXIL CR [Suspect]
     Active Substance: PAROXETINE HYDROCHLORIDE
     Indication: ANXIETY
     Dosage: 12.5 MG, UNK
     Route: 048
  5. PAXIL CR [Suspect]
     Active Substance: PAROXETINE HYDROCHLORIDE
     Dosage: 12.5 MG, UNK
     Route: 048
  6. XEPLION [Concomitant]
     Active Substance: PALIPERIDONE PALMITATE
     Indication: PRODUCT USED FOR UNKNOWN INDICATION
     Dosage: 150 MG, UNK
     Route: 065
     Dates: start: 20131228
  7. XEPLION [Concomitant]
     Active Substance: PALIPERIDONE PALMITATE
     Dosage: 50 MG, UNK
     Route: 065

REACTIONS (5)
  - Suicide attempt [Recovered/Resolved]
  - Anxiety [Unknown]
  - Off label use [Unknown]
  - Completed suicide [Fatal]
  - Suicidal ideation [Recovering/Resolving]

NARRATIVE: CASE EVENT DATE: 20160518
